FAERS Safety Report 9621596 (Version 2)
Quarter: 2013Q4

REPORT INFORMATION
  Report Type: Spontaneous
  Country: US (occurrence: US)
  Receive Date: 20131015
  Receipt Date: 20131209
  Transmission Date: 20140711
  Serious: No
  Sender: FDA-Public Use
  Company Number: US-PFIZER INC-2013293808

PATIENT
  Age: 74 Year
  Sex: Female
  Weight: 49.89 kg

DRUGS (4)
  1. LIPITOR [Suspect]
     Indication: BLOOD CHOLESTEROL INCREASED
     Dosage: 20 MG, 1X/DAY
     Route: 048
     Dates: start: 201307
  2. CLONIDINE [Concomitant]
     Indication: HYPERTENSION
     Dosage: UNK
  3. NORVASC [Concomitant]
     Indication: HYPERTENSION
     Dosage: UNK
  4. TOPROL XL [Concomitant]
     Dosage: UNK

REACTIONS (3)
  - Urticaria [Unknown]
  - Blood potassium decreased [Unknown]
  - Rash [Unknown]
